FAERS Safety Report 11963763 (Version 1)
Quarter: 2016Q1

REPORT INFORMATION
  Report Type: Spontaneous
  Country: US (occurrence: None)
  Receive Date: 20160122
  Receipt Date: 20160122
  Transmission Date: 20160526
  Serious: Yes (Other)
  Sender: FDA-Public Use
  Company Number: None

PATIENT
  Age: 40 Year
  Sex: Male
  Weight: 66.68 kg

DRUGS (6)
  1. SYMBICORT [Suspect]
     Active Substance: BUDESONIDE\FORMOTEROL FUMARATE DIHYDRATE
     Indication: ASTHMA
     Dosage: 1 PUFF, INHALATION (RESPIRATORY), ONCE DAILY
  2. GENERIC ZYRTEC [Concomitant]
  3. AZELASTINE NASAL SPRAY [Concomitant]
  4. PROAIR HFA RESCUE INHALER [Concomitant]
  5. SINGULAIR [Concomitant]
     Active Substance: MONTELUKAST SODIUM
  6. OMNARIS [Concomitant]
     Active Substance: CICLESONIDE

REACTIONS (1)
  - Gingival recession [None]

NARRATIVE: CASE EVENT DATE: 20160121
